FAERS Safety Report 5888907-X (Version None)
Quarter: 2008Q3

REPORT INFORMATION
  Report Type: 
  Country: None (occurrence: None)
  Receive Date: 20080919
  Receipt Date: 20080912
  Transmission Date: 20090109
  Serious: Yes (Other)
  Sender: FDA-Public Use
  Company Number: PHHY2008PT21155

PATIENT
  Sex: Female
  Weight: 45 kg

DRUGS (8)
  1. EXELON [Suspect]
     Indication: DEMENTIA
     Dosage: 9.5 MG
     Route: 062
     Dates: start: 20080710, end: 20080911
  2. SINEMET [Concomitant]
     Indication: PARKINSONISM
     Dosage: 3 TABLETS
     Route: 048
     Dates: start: 20070108
  3. GABAPENTIN [Concomitant]
     Indication: ANXIETY
     Dosage: 1800 MG
     Route: 048
     Dates: start: 20071204
  4. BUPROPION HCL [Suspect]
     Indication: DEPRESSION
     Dosage: 150 MG
     Route: 048
     Dates: start: 20080509
  5. ZOTEPINE [Concomitant]
     Indication: AGITATION
     Dosage: 50 MG
     Route: 048
     Dates: start: 20080509
  6. ZOTEPINE [Concomitant]
     Indication: HYPNOTHERAPY
  7. RIVASTIGMINE TARTRATE [Concomitant]
     Dosage: 12 MG
     Route: 048
  8. ANTIHISTAMINICS [Concomitant]

REACTIONS (2)
  - APPLICATION SITE REACTION [None]
  - EPIDERMOLYSIS [None]
